FAERS Safety Report 9656545 (Version 2)
Quarter: 2014Q1

REPORT INFORMATION
  Report Type: Spontaneous
  Country: FR (occurrence: FR)
  Receive Date: 20131030
  Receipt Date: 20140130
  Transmission Date: 20141002
  Serious: Yes (Hospitalization, Other)
  Sender: FDA-Public Use
  Company Number: PHHY2013FR121468

PATIENT
  Sex: 0

DRUGS (4)
  1. SANDOSTATINE LAR [Suspect]
     Indication: NEUROENDOCRINE TUMOUR
     Dosage: 30 MG, ONCE IN 4 WEEKS
     Route: 058
     Dates: start: 20110628
  2. AFINITOR [Suspect]
     Indication: NEUROENDOCRINE TUMOUR
     Dosage: 5 MG, QD
     Route: 048
     Dates: start: 20130430, end: 20131008
  3. TORENTAL [Concomitant]
     Indication: ARTERIOSCLEROSIS
     Dosage: 400 MG, TID
     Route: 048
     Dates: start: 2011
  4. PANTOPRAZOLE [Concomitant]
     Indication: ABDOMINAL PAIN UPPER
     Dosage: 40 MG, DAILY
     Route: 048
     Dates: start: 20130924

REACTIONS (7)
  - Staphylococcal sepsis [Recovered/Resolved]
  - Grand mal convulsion [Recovered/Resolved]
  - Vena cava thrombosis [Unknown]
  - Diabetes mellitus [Unknown]
  - Hepatitis [Unknown]
  - Hypercholesterolaemia [Unknown]
  - Incorrect route of drug administration [Unknown]
